FAERS Safety Report 8682658 (Version 2)
Quarter: 2012Q4

REPORT INFORMATION
  Report Type: 
  Country: US (occurrence: US)
  Receive Date: 20120725
  Receipt Date: 20120906
  Transmission Date: 20130627
  Serious: No
  Sender: FDA-Public Use
  Company Number: US-ASTRAZENECA-2012SE46288

PATIENT
  Age: 74 Year
  Sex: Female

DRUGS (2)
  1. ATACAND [Suspect]
     Route: 048
  2. ATACAND [Suspect]
     Dosage: HALF 16 MG TABLET
     Route: 048

REACTIONS (7)
  - Drug hypersensitivity [Unknown]
  - Fatigue [Unknown]
  - Asthenia [Unknown]
  - Aphagia [Unknown]
  - Dizziness [Unknown]
  - Off label use [Unknown]
  - Drug ineffective [Unknown]
